FAERS Safety Report 7552886-X (Version None)
Quarter: 2011Q2

REPORT INFORMATION
  Report Type: 
  Country: None (occurrence: None)
  Receive Date: 20110616
  Receipt Date: 20101116
  Transmission Date: 20111010
  Serious: Yes (Other)
  Sender: FDA-Public Use
  Company Number: US-ASTRAZENECA-2010SE54707

PATIENT
  Sex: Female

DRUGS (3)
  1. TAMOXIFEN CITRATE [Concomitant]
  2. FASLODEX [Suspect]
     Route: 030
     Dates: start: 20080101
  3. AROMATASE INHIBITORS [Concomitant]

REACTIONS (1)
  - METASTASES TO BONE [None]
